FAERS Safety Report 9825162 (Version 1)
Quarter: 2013Q4

REPORT INFORMATION
  Report Type: Spontaneous
  Country: GB (occurrence: None)
  Receive Date: 20131031
  Receipt Date: 20131031
  Transmission Date: 20140711
  Serious: Yes (Disabling)
  Sender: FDA-Public Use
  Company Number: 2013S1000033

PATIENT
  Age: 57 Year
  Sex: Female

DRUGS (2)
  1. KRYSTEXXA [Suspect]
     Indication: GOUTY TOPHUS
     Route: 042
     Dates: start: 20120720, end: 20120720
  2. PREDNISONE (PREDNISONE) [Concomitant]

REACTIONS (1)
  - Gout [None]
